FAERS Safety Report 18841671 (Version 5)
Quarter: 2023Q2

REPORT INFORMATION
  Report Type: Spontaneous
  Country: US (occurrence: US)
  Receive Date: 20210203
  Receipt Date: 20230406
  Transmission Date: 20230721
  Serious: No
  Sender: FDA-Public Use
  Company Number: US-PFIZER INC-2021085012

PATIENT
  Age: 71 Year
  Sex: Female

DRUGS (2)
  1. XELJANZ [Suspect]
     Active Substance: TOFACITINIB CITRATE
     Dosage: 5 MG, 2X/DAY (60 TABLETS)
     Route: 048
  2. XELJANZ [Suspect]
     Active Substance: TOFACITINIB CITRATE
     Dosage: 5 MG, 1X/DAY (30 TABLETS, 60 TABLETS FOR PATIENT ASSISTANCE PROGRAM)
     Route: 048

REACTIONS (4)
  - Alopecia [Unknown]
  - Confusional state [Unknown]
  - Herpes zoster [Unknown]
  - Off label use [Unknown]
